FAERS Safety Report 5944902-3 (Version None)
Quarter: 2008Q4

REPORT INFORMATION
  Report Type: 
  Country: None (occurrence: None)
  Receive Date: 20081107
  Receipt Date: 20081103
  Transmission Date: 20090506
  Serious: Yes (Other)
  Sender: FDA-Public Use
  Company Number: FR-ASTRAZENECA-2008CG01303

PATIENT
  Age: 19319 Day
  Sex: Male
  Weight: 70 kg

DRUGS (10)
  1. ENTOCORT EC [Suspect]
     Indication: CROHN'S DISEASE
     Route: 048
     Dates: start: 20080901, end: 20081015
  2. CIALIS [Interacting]
     Indication: ERECTILE DYSFUNCTION
     Route: 048
  3. MOPRAL [Concomitant]
     Route: 065
  4. IMUREL [Concomitant]
     Indication: CROHN'S DISEASE
  5. IMODIUM [Concomitant]
  6. DI-ANTALVIC [Concomitant]
  7. LIPANTHYL [Concomitant]
     Indication: HYPERTRIGLYCERIDAEMIA
  8. ANAFRANIL [Concomitant]
  9. SOLIAN [Concomitant]
  10. SERESTA [Concomitant]

REACTIONS (3)
  - DRUG INTERACTION [None]
  - ERECTILE DYSFUNCTION [None]
  - LIBIDO DECREASED [None]
